FAERS Safety Report 21737626 (Version 1)
Quarter: 2022Q4

REPORT INFORMATION
  Report Type: Spontaneous
  Country: FR (occurrence: FR)
  Receive Date: 20221216
  Receipt Date: 20221216
  Transmission Date: 20230112
  Serious: Yes (Hospitalization)
  Sender: FDA-Public Use
  Company Number: None

PATIENT
  Age: 68 Year
  Sex: Female

DRUGS (10)
  1. AMOXICILLIN [Suspect]
     Active Substance: AMOXICILLIN
     Indication: Product used for unknown indication
     Dosage: DURATION : 12 DAYS
     Dates: start: 20220926, end: 20221008
  2. CARBAMAZEPINE [Suspect]
     Active Substance: CARBAMAZEPINE
     Indication: Trigeminal neuralgia
     Dosage: DURATION : 48 DAYS
     Dates: start: 20220911, end: 20221029
  3. SPIRAMYCIN [Concomitant]
     Active Substance: SPIRAMYCIN
     Indication: Product used for unknown indication
     Dosage: DURATION : 2 DAYS
     Dates: start: 20221027, end: 20221029
  4. PHLOROGLUCINOL [Concomitant]
     Active Substance: PHLOROGLUCINOL
     Indication: Product used for unknown indication
     Dosage: PHLOROGLUCINOL (TRIMETHYL ETHER DU), DURATION : 21 DAYS
     Dates: start: 20221008, end: 20221029
  5. RABEPRAZOLE [Concomitant]
     Active Substance: RABEPRAZOLE
     Indication: Product used for unknown indication
     Dosage: RABEPRAZOLE BASE, DURATION : 21 DAYS
     Dates: start: 20221008, end: 20221029
  6. CLARITHROMYCIN [Concomitant]
     Active Substance: CLARITHROMYCIN
     Indication: Product used for unknown indication
     Dosage: DURATION : 7 DAYS
     Dates: start: 20221008, end: 20221015
  7. PREDNISONE [Concomitant]
     Active Substance: PREDNISONE
     Indication: Product used for unknown indication
     Dosage: DURATION : 5 DAYS
     Dates: start: 20221008, end: 20221013
  8. ALUMINUM HYDROXIDE\ALUMINUM PHOSPHATE\GUAR GUM\MAGNESIUM HYDROXIDE [Concomitant]
     Active Substance: ALUMINUM HYDROXIDE\ALUMINUM PHOSPHATE\GUAR GUM\MAGNESIUM HYDROXIDE
     Indication: Product used for unknown indication
     Dosage: DURATION : 21 DAYS
     Dates: start: 20221008, end: 20221029
  9. BICLOTYMOL [Concomitant]
     Active Substance: BICLOTYMOL
     Indication: Product used for unknown indication
     Dosage: DURATION : 21 DAYS
     Dates: start: 20221008, end: 20221029
  10. INNOVAIR [Concomitant]
     Active Substance: BECLOMETHASONE DIPROPIONATE\FORMOTEROL
     Indication: Product used for unknown indication
     Dosage: DURATION : 21 DAYS
     Dates: start: 20221008, end: 20221029

REACTIONS (1)
  - Drug reaction with eosinophilia and systemic symptoms [Recovered/Resolved]

NARRATIVE: CASE EVENT DATE: 20221010
